FAERS Safety Report 9826303 (Version 1)
Quarter: 2014Q1

REPORT INFORMATION
  Report Type: Spontaneous
  Country: US (occurrence: US)
  Receive Date: 20140117
  Receipt Date: 20140117
  Transmission Date: 20141002
  Serious: No
  Sender: FDA-Public Use
  Company Number: US-BIOGENIDEC-2014BI001003

PATIENT
  Sex: Female

DRUGS (13)
  1. TECFIDERA [Suspect]
     Indication: MULTIPLE SCLEROSIS
     Route: 048
  2. ACETYL L-CARNITINE [Concomitant]
  3. MAGNESIUM [Concomitant]
  4. MSM [Concomitant]
  5. NORGESTIMATE-ETHINYL [Concomitant]
  6. SAM-E [Concomitant]
  7. VITAMIN B COMPLEX [Concomitant]
  8. VITAMIN C [Concomitant]
  9. VITAMIN E [Concomitant]
  10. VITAMIN D [Concomitant]
  11. ASPIRIN [Concomitant]
  12. LIVER PROTECT [Concomitant]
  13. BORAGE OIL [Concomitant]

REACTIONS (3)
  - Underdose [Not Recovered/Not Resolved]
  - Flushing [Recovered/Resolved]
  - Pruritus [Recovered/Resolved]
